FAERS Safety Report 17040998 (Version 2)
Quarter: 2019Q4

REPORT INFORMATION
  Report Type: Spontaneous
  Country: US (occurrence: US)
  Receive Date: 20191115
  Receipt Date: 20191115
  Transmission Date: 20200122
  Serious: No
  Sender: FDA-Public Use
  Company Number: US-ALKEM LABORATORIES LIMITED-US-ALKEM-2019-06092

PATIENT
  Sex: Female

DRUGS (1)
  1. ISONIAZID. [Suspect]
     Active Substance: ISONIAZID
     Indication: TUBERCULOSIS
     Dosage: UNK
     Route: 065

REACTIONS (1)
  - Maternal exposure during breast feeding [Unknown]
